FAERS Safety Report 9017514 (Version 1)
Quarter: 2013Q1

REPORT INFORMATION
  Report Type: Spontaneous
  Country: IE (occurrence: IE)
  Receive Date: 20130117
  Receipt Date: 20130117
  Transmission Date: 20140127
  Serious: Yes (Life-Threatening, Other)
  Sender: FDA-Public Use
  Company Number: IE-WATSON-2013-00290

PATIENT
  Age: 40 Year
  Sex: Female

DRUGS (2)
  1. LIDOCAINE HYDROCHLORIDE 1% WITH EPINEPHRINE (WATSON LABORATORIES) [Suspect]
     Indication: LOCAL ANAESTHESIA
     Dosage: 20 ML OF 2%
     Route: 065
  2. LEVOBUPIVACAINE [Suspect]
     Indication: ANAESTHESIA
     Dosage: 3 ML OF 0.25%,7 ML OF 0.25%,10 ML OF 0.25%,7.5 ML OF 0.25%
     Route: 008

REACTIONS (12)
  - Respiratory paralysis [Recovered/Resolved]
  - Dyspnoea [Unknown]
  - Diplegia [Unknown]
  - Sensory loss [Not Recovered/Not Resolved]
  - Paraesthesia [Not Recovered/Not Resolved]
  - Nausea [Unknown]
  - Grip strength decreased [Unknown]
  - Mydriasis [Unknown]
  - Medical device complication [Unknown]
  - Incorrect route of drug administration [Unknown]
  - Medication error [Unknown]
  - Maternal exposure during pregnancy [Unknown]
